FAERS Safety Report 10027720 (Version 1)
Quarter: 2014Q1

REPORT INFORMATION
  Report Type: Spontaneous
  Country: US (occurrence: US)
  Receive Date: 20140321
  Receipt Date: 20140321
  Transmission Date: 20141002
  Serious: No
  Sender: FDA-Public Use
  Company Number: US-MALLINCKRODT-T201303424

PATIENT
  Age: 60 Year
  Sex: Female
  Weight: 58.5 kg

DRUGS (2)
  1. METHADONE [Suspect]
     Indication: DRUG DETOXIFICATION
     Dosage: 10 MG, TID
     Route: 048
     Dates: start: 201210
  2. METHADONE [Suspect]
     Dosage: UNK
     Dates: start: 2012, end: 201210

REACTIONS (2)
  - Mental status changes [Not Recovered/Not Resolved]
  - Apathy [Not Recovered/Not Resolved]
